FAERS Safety Report 7437744-3 (Version None)
Quarter: 2011Q2

REPORT INFORMATION
  Report Type: 
  Country: None (occurrence: None)
  Receive Date: 20110426
  Receipt Date: 20110417
  Transmission Date: 20111010
  Serious: Yes (Death, Other)
  Sender: FDA-Public Use
  Company Number: CN-ROCHE-771945

PATIENT
  Age: 70 Year
  Sex: Male

DRUGS (3)
  1. AVASTIN [Suspect]
     Route: 065
  2. OXALIPLATIN [Concomitant]
  3. XELODA [Suspect]
     Route: 065

REACTIONS (4)
  - CONVULSION [None]
  - COMA [None]
  - MUSCLE SPASMS [None]
  - THROMBOSIS [None]
